FAERS Safety Report 6559288-3 (Version None)
Quarter: 2010Q1

REPORT INFORMATION
  Report Type: 
  Country: None (occurrence: None)
  Receive Date: 20100129
  Receipt Date: 20091029
  Transmission Date: 20100710
  Serious: No
  Sender: FDA-Public Use
  Company Number: US-ABBOTT-09P-163-0579055-00

PATIENT
  Sex: Female
  Weight: 97.156 kg

DRUGS (13)
  1. HUMIRA [Suspect]
     Indication: RHEUMATOID ARTHRITIS
     Dates: start: 20090319, end: 20090415
  2. HUMIRA [Suspect]
     Dates: start: 20090416, end: 20090514
  3. HUMIRA [Suspect]
     Dates: start: 20090521
  4. TYLENOL-500 [Concomitant]
     Indication: PYREXIA
  5. METHOTREXATE [Concomitant]
     Indication: RHEUMATOID ARTHRITIS
     Dates: end: 20090415
  6. PREDNISOLONE [Concomitant]
     Indication: RHEUMATOID ARTHRITIS
     Route: 048
  7. ISONIAZID [Concomitant]
     Indication: ANTIBIOTIC PROPHYLAXIS
  8. FOLIC ACID [Concomitant]
     Indication: FOLATE DEFICIENCY
     Dates: end: 20090415
  9. FOLIC ACID [Concomitant]
     Indication: PROPHYLAXIS
  10. RABEPRAZOLE SODIUM [Concomitant]
     Indication: GASTRITIS PROPHYLAXIS
  11. PYRIDOXAL PHOSPHATE HYDRATE [Concomitant]
     Indication: HYPOVITAMINOSIS
  12. PYRIDOXAL PHOSPHATE HYDRATE [Concomitant]
     Indication: PROPHYLAXIS
  13. BETAMETHASONE SODIUM PHOSPHATE [Concomitant]
     Indication: RHEUMATOID ARTHRITIS
     Route: 050
     Dates: start: 20090702, end: 20090702

REACTIONS (6)
  - ASTHMA [None]
  - BONE PAIN [None]
  - CHEST DISCOMFORT [None]
  - DYSPNOEA [None]
  - HEADACHE [None]
  - PYREXIA [None]
